FAERS Safety Report 4290577-1 (Version None)
Quarter: 2004Q1

REPORT INFORMATION
  Report Type: 
  Country: None (occurrence: None)
  Receive Date: 20040205
  Receipt Date: 20040120
  Transmission Date: 20041129
  Serious: Yes (Hospitalization, Other)
  Sender: FDA-Public Use
  Company Number: 234183

PATIENT
  Age: 55 Year
  Sex: Male
  Weight: 70 kg

DRUGS (8)
  1. NOVOSEVEN [Suspect]
     Indication: CEREBRAL HAEMORRHAGE
     Dosage: 80 UG/KG, INTRAVENOUS
     Route: 042
     Dates: start: 20031023, end: 20031023
  2. RAMIPRIL [Suspect]
  3. PANTOZOL (PANTOPRAZOLE SODIUM) [Concomitant]
  4. IBUPROFEN [Suspect]
  5. ASS ^CT-ARZENEIMITTEL^ (ACETYLSALICYLIC ACID) [Concomitant]
  6. FRAGMIN (HEPARIN FRACTION, SODUIM SALT) [Concomitant]
  7. AMUNO (INDOMETACIN) [Concomitant]
  8. RAMIPRIL [Concomitant]

REACTIONS (2)
  - DEEP VEIN THROMBOSIS [None]
  - PULMONARY EMBOLISM [None]
